FAERS Safety Report 14549559 (Version 1)
Quarter: 2018Q1

REPORT INFORMATION
  Report Type: Spontaneous
  Country: US (occurrence: US)
  Receive Date: 20180219
  Receipt Date: 20180219
  Transmission Date: 20180509
  Serious: No
  Sender: FDA-Public Use
  Company Number: US-GLAXOSMITHKLINE-US2018026722

PATIENT
  Sex: Female

DRUGS (6)
  1. CARAFATE [Concomitant]
     Active Substance: SUCRALFATE
  2. ALBUTEROL. [Concomitant]
     Active Substance: ALBUTEROL
  3. PAROXETINE. [Concomitant]
     Active Substance: PAROXETINE
  4. CIMETIDINE [Concomitant]
     Active Substance: CIMETIDINE
  5. BREO ELLIPTA [Suspect]
     Active Substance: FLUTICASONE FUROATE\VILANTEROL TRIFENATATE
     Indication: ASTHMA
     Dosage: 200/25
     Route: 055
     Dates: start: 2014
  6. HYDROXYZINE [Concomitant]
     Active Substance: HYDROXYZINE HYDROCHLORIDE

REACTIONS (2)
  - Drug effect incomplete [Unknown]
  - Dysphonia [Recovered/Resolved]
